FAERS Safety Report 5341157-8 (Version None)
Quarter: 2007Q2

REPORT INFORMATION
  Report Type: 
  Country: None (occurrence: None)
  Receive Date: 20070404
  Receipt Date: 20061211
  Transmission Date: 20071010
  Serious: No
  Sender: FDA-Public Use
  Company Number: US200612001852

PATIENT
  Sex: Male

DRUGS (5)
  1. ALIMTA [Suspect]
     Indication: NEOPLASM MALIGNANT
     Dosage: INTRAVENOUS
     Route: 042
  2. FOLIC ACID [Concomitant]
  3. VITAMIN B12 [Concomitant]
  4. ZOMETA [Concomitant]
  5. ARANESP [Concomitant]

REACTIONS (1)
  - LACRIMATION INCREASED [None]
